FAERS Safety Report 25472400 (Version 1)
Quarter: 2025Q2

REPORT INFORMATION
  Report Type: Report from Study
  Country: BE (occurrence: BE)
  Receive Date: 20250624
  Receipt Date: 20250624
  Transmission Date: 20250717
  Serious: Yes (Hospitalization, Other)
  Sender: ABBVIE
  Company Number: BE-ABBVIE-6339116

PATIENT
  Age: 60 Year
  Sex: Male

DRUGS (11)
  1. BOTULINUM TOXIN NOS [Suspect]
     Active Substance: BOTULINUM TOXIN NOS
     Indication: Headache
     Route: 065
  2. AVAPRITINIB [Suspect]
     Active Substance: AVAPRITINIB
     Indication: Smouldering systemic mastocytosis
     Route: 048
     Dates: start: 20211005, end: 20211130
  3. AVAPRITINIB [Suspect]
     Active Substance: AVAPRITINIB
     Indication: Smouldering systemic mastocytosis
     Dosage: DOSE REDUCED
     Route: 048
     Dates: start: 20211208, end: 20230706
  4. AVAPRITINIB [Suspect]
     Active Substance: AVAPRITINIB
     Indication: Smouldering systemic mastocytosis
     Route: 048
     Dates: start: 20230716
  5. LOPERAMIDE [Concomitant]
     Active Substance: LOPERAMIDE
     Indication: Smouldering systemic mastocytosis
     Route: 065
     Dates: start: 20240605
  6. SOLIFENACIN [Concomitant]
     Active Substance: SOLIFENACIN
     Indication: Benign prostatic hyperplasia
     Route: 048
  7. RUPATADINE [Concomitant]
     Active Substance: RUPATADINE
     Indication: Smouldering systemic mastocytosis
     Dosage: 800 INTERNATIONAL UNIT
     Route: 048
     Dates: start: 20250212
  8. BILASTINE [Concomitant]
     Active Substance: BILASTINE
     Indication: Smouldering systemic mastocytosis
     Route: 048
     Dates: start: 20250211
  9. TAMSULOSIN [Concomitant]
     Active Substance: TAMSULOSIN
     Indication: Benign prostatic hyperplasia
     Route: 048
  10. VITAMIN D3 [Concomitant]
     Active Substance: CHOLECALCIFEROL
     Indication: Vitamin supplementation
     Dosage: 800IU  (20UG)
     Route: 048
     Dates: start: 202405
  11. NICOTINE [Concomitant]
     Active Substance: NICOTINE
     Indication: Ex-tobacco user
     Dosage: ROUTE OF ADMINISTRATION-TOPICAL
     Dates: start: 202312

REACTIONS (9)
  - Colitis [Recovered/Resolved]
  - Pruritus [Recovered/Resolved]
  - Fatigue [Unknown]
  - Insomnia [Unknown]
  - Dental caries [Unknown]
  - Lacrimation increased [Unknown]
  - Obstructive sleep apnoea syndrome [Unknown]
  - Pruritus [Unknown]
  - Headache [Unknown]

NARRATIVE: CASE EVENT DATE: 20230307
